FAERS Safety Report 19345236 (Version 4)
Quarter: 2021Q3

REPORT INFORMATION
  Report Type: Report from Study
  Country: None (occurrence: TR)
  Receive Date: 20210531
  Receipt Date: 20210701
  Transmission Date: 20211014
  Serious: Yes (Hospitalization, Other)
  Sender: FDA-Public Use
  Company Number: TR-ABBVIE-21K-161-3926692-00

PATIENT
  Age: 71 Year
  Sex: Female
  Weight: 60 kg

DRUGS (3)
  1. DUODOPA [Suspect]
     Active Substance: CARBIDOPA\LEVODOPA
     Dosage: MORNING DOSE 6.00 ML, CONTINUES DOSE 3.20 ML, EXTRA DOSE 1.00 ML
     Route: 050
     Dates: start: 20210618
  2. DUODOPA [Suspect]
     Active Substance: CARBIDOPA\LEVODOPA
     Indication: PARKINSON^S DISEASE
     Dosage: MORNING DOSE 6.00 ML, CONTINUES DOSE 2.40 ML, EXTRA DOSE 1.00 ML
     Route: 050
     Dates: start: 20210527, end: 20210527
  3. DUODOPA [Suspect]
     Active Substance: CARBIDOPA\LEVODOPA
     Dosage: MORNING DOSE 6.00 ML, CONTINUES DOSE 3.20 ML, EXTRA DOSE 1.00 ML
     Route: 050
     Dates: start: 20210529, end: 20210618

REACTIONS (5)
  - Pneumoperitoneum [Recovered/Resolved]
  - Neutrophil count increased [Recovered/Resolved]
  - Abdominal pain [Recovered/Resolved]
  - Hypophagia [Recovered/Resolved]
  - C-reactive protein increased [Recovered/Resolved]

NARRATIVE: CASE EVENT DATE: 20210527
